FAERS Safety Report 21773909 (Version 2)
Quarter: 2022Q4

REPORT INFORMATION
  Report Type: Report from Study
  Country: PT (occurrence: PT)
  Receive Date: 20221223
  Receipt Date: 20221228
  Transmission Date: 20230113
  Serious: Yes (Death, Disabling, Other)
  Sender: FDA-Public Use
  Company Number: PT-002147023-NVSC2022PT296575

PATIENT
  Sex: Male

DRUGS (7)
  1. LUTATHERA [Suspect]
     Active Substance: LUTETIUM OXODOTREOTIDE LU-177
     Indication: Gastroenteropancreatic neuroendocrine tumour disease
     Dosage: 200 MCI, EVERY 8 WEEKS
     Route: 042
     Dates: start: 20181018, end: 20181018
  2. LUTATHERA [Suspect]
     Active Substance: LUTETIUM OXODOTREOTIDE LU-177
     Dosage: 200 MCI, EVERY 8 WEEKS
     Route: 042
     Dates: start: 20190103, end: 20190103
  3. LUTATHERA [Suspect]
     Active Substance: LUTETIUM OXODOTREOTIDE LU-177
     Dosage: 200 MCI, EVERY 8 WEEKS
     Route: 042
     Dates: start: 20190319, end: 20190319
  4. LUTATHERA [Suspect]
     Active Substance: LUTETIUM OXODOTREOTIDE LU-177
     Dosage: 200 MCI, EVERY 8 WEEKS
     Route: 042
     Dates: start: 20190530, end: 20190530
  5. LACTULOSE [Concomitant]
     Active Substance: LACTULOSE
     Indication: Product used for unknown indication
     Dosage: UNK UNK, TID (MEDICATION PRESCRIBED UNTIL THE DATE OF DEATH)
     Route: 048
     Dates: start: 20191229
  6. SODIUM CHLORIDE [Concomitant]
     Active Substance: SODIUM CHLORIDE
     Indication: Product used for unknown indication
     Dosage: UNK (SOLUTION) (ADMINISTRATION OF 1 L OF POLYELECTROLYTIC SALINE)
     Route: 042
     Dates: start: 20191229, end: 20191229
  7. LANREOTIDE [Concomitant]
     Active Substance: LANREOTIDE
     Indication: Product used for unknown indication
     Dosage: 120 MG, EVERY 28 DAYS
     Route: 058
     Dates: start: 20180802, end: 20191223

REACTIONS (12)
  - Death [Fatal]
  - Hyperammonaemic encephalopathy [Not Recovered/Not Resolved]
  - Myalgia [Unknown]
  - Jaundice [Unknown]
  - Speech disorder [Unknown]
  - Confusional state [Unknown]
  - Balance disorder [Unknown]
  - Disorientation [Unknown]
  - Coordination abnormal [Unknown]
  - General physical health deterioration [Not Recovered/Not Resolved]
  - Ascites [Unknown]
  - Generalised oedema [Unknown]

NARRATIVE: CASE EVENT DATE: 20191201
